FAERS Safety Report 10428709 (Version 1)
Quarter: 2014Q3

REPORT INFORMATION
  Report Type: Spontaneous
  Country: ES (occurrence: None)
  Receive Date: 20140902
  Receipt Date: 20140902
  Transmission Date: 20150326
  Serious: Yes (Other)
  Sender: FDA-Public Use
  Company Number: IMP_07872_2014

PATIENT
  Age: 53 Year
  Sex: Male

DRUGS (5)
  1. VALSARTAN. [Concomitant]
     Active Substance: VALSARTAN
  2. AMLODIPINE [Concomitant]
     Active Substance: AMLODIPINE BESYLATE
  3. ALOPURINOL [Concomitant]
     Active Substance: ALLOPURINOL
  4. FENOFIBRATE (FENOFIBRATE) (FENOFIBRATE) [Suspect]
     Active Substance: FENOFIBRATE
     Indication: HYPERTRIGLYCERIDAEMIA
     Dosage: {160 M/D]
  5. ATORVASTATINE [Concomitant]
     Active Substance: ATORVASTATIN

REACTIONS (3)
  - Hyperuricaemia [None]
  - Rhabdomyolysis [None]
  - Blood creatinine increased [None]
